FAERS Safety Report 9915630 (Version 1)
Quarter: 2014Q1

REPORT INFORMATION
  Report Type: Spontaneous
  Country: US (occurrence: None)
  Receive Date: 20140219
  Receipt Date: 20140219
  Transmission Date: 20141002
  Serious: Yes (Other)
  Sender: FDA-Public Use
  Company Number: None

PATIENT
  Age: 51 Year
  Sex: Female

DRUGS (1)
  1. ADCIRCA [Suspect]
     Route: 048
     Dates: start: 20130416, end: 201402

REACTIONS (1)
  - Myocardial infarction [None]
